FAERS Safety Report 8510687 (Version 2)
Quarter: 2013Q2

REPORT INFORMATION
  Report Type: Spontaneous
  Country: JP (occurrence: JP)
  Receive Date: 20120413
  Receipt Date: 20130409
  Transmission Date: 20140414
  Serious: Yes (Hospitalization, Other)
  Sender: FDA-Public Use
  Company Number: JP-ROCHE-1043622

PATIENT
  Age: 59 Year
  Sex: Male
  Weight: 65 kg

DRUGS (17)
  1. XELODA [Suspect]
     Indication: GASTRIC CANCER RECURRENT
     Dosage: IT IS ONE ADMINISTERING WEEKLY HOLIDAY MEDICINE FOR 2 WEEKS
     Route: 048
     Dates: start: 20110414, end: 20110706
  2. XELODA [Suspect]
     Indication: GASTRIC CANCER RECURRENT
     Dosage: IT IS ONE AADMINISTERING WEEKLY HOLIDAY MEDICINE FOR TWO WEEKS
     Route: 048
     Dates: start: 20110803
  3. HERCEPTIN [Suspect]
     Indication: GASTRIC CANCER RECURRENT
     Route: 041
     Dates: start: 20110414, end: 20110414
  4. HERCEPTIN [Suspect]
     Indication: GASTRIC CANCER RECURRENT
     Route: 041
     Dates: start: 20110511, end: 20110622
  5. HERCEPTIN [Suspect]
     Indication: GASTRIC CANCER RECURRENT
     Route: 041
     Dates: start: 20110803
  6. CISPLATIN [Suspect]
     Indication: GASTRIC CANCER RECURRENT
     Dosage: 60-120 MG
     Route: 041
     Dates: start: 20110414, end: 20110921
  7. ZYLORIC [Concomitant]
     Indication: HYPERURICAEMIA
     Route: 048
     Dates: start: 2003, end: 20110713
  8. VOLTAREN [Concomitant]
     Indication: PAIN
     Route: 048
     Dates: start: 20100412
  9. GOSHA-JINKI-GAN [Concomitant]
     Indication: NEUROPATHY PERIPHERAL
     Route: 048
     Dates: start: 20100818
  10. EMEND [Concomitant]
     Indication: PROPHYLAXIS OF NAUSEA AND VOMITING
     Route: 048
     Dates: start: 20110414, end: 201109
  11. EMEND [Concomitant]
     Indication: PROPHYLAXIS OF NAUSEA AND VOMITING
     Route: 048
     Dates: start: 201104, end: 20110924
  12. EMEND [Concomitant]
     Route: 048
     Dates: start: 20110924
  13. LOPEMIN [Concomitant]
     Indication: DIARRHOEA
     Route: 048
     Dates: start: 20101124
  14. DECADRON [Concomitant]
     Indication: PROPHYLAXIS
     Route: 048
     Dates: start: 20110414, end: 20110924
  15. SAXIZON [Concomitant]
     Indication: PROPHYLAXIS
     Route: 042
     Dates: start: 20110414
  16. DEXART [Concomitant]
     Indication: PROPHYLAXIS
     Route: 041
     Dates: start: 20110414, end: 20110921
  17. GRANISETRON [Concomitant]
     Indication: PROPHYLAXIS
     Route: 041
     Dates: start: 20110414, end: 20110921

REACTIONS (15)
  - Neutrophil count decreased [Recovered/Resolved]
  - Febrile neutropenia [Recovered/Resolved]
  - Haemoglobin decreased [Unknown]
  - Pyrexia [Unknown]
  - White blood cell count decreased [Unknown]
  - Cardiotoxicity [Recovering/Resolving]
  - Malaise [Unknown]
  - Decreased appetite [Unknown]
  - Renal disorder [Unknown]
  - Platelet count decreased [Unknown]
  - Stomatitis [Unknown]
  - Hiccups [Unknown]
  - Palmar-plantar erythrodysaesthesia syndrome [Unknown]
  - Pain [Unknown]
  - Constipation [Unknown]
